FAERS Safety Report 4714722-6 (Version None)
Quarter: 2005Q3

REPORT INFORMATION
  Report Type: 
  Country: None (occurrence: None)
  Receive Date: 20050715
  Receipt Date: 20050617
  Transmission Date: 20060218
  Serious: Yes (Hospitalization, Other)
  Sender: FDA-Public Use
  Company Number: US-BRISTOL-MYERS SQUIBB COMPANY-13008438

PATIENT
  Age: 56 Year
  Sex: Male
  Weight: 84 kg

DRUGS (22)
  1. CETUXIMAB [Suspect]
     Indication: OESOPHAGEAL CARCINOMA
     Dosage: INITIAL TX DATE: 17-MAY-05.  STUDY DRUGS HELD AND RESUMED ON 21-JUN-05.
     Route: 042
     Dates: start: 20050607, end: 20050607
  2. CISPLATIN [Suspect]
     Indication: OESOPHAGEAL CARCINOMA
     Dosage: ADM ON WKS 1, 2, 4, AND 5.  INITIAL TX DATE: 24-MAY-05. STUDY DRUG HELD AND RESUMED ON 21-JUN-05.
     Route: 042
     Dates: start: 20050601, end: 20050601
  3. IRINOTECAN [Suspect]
     Indication: OESOPHAGEAL CARCINOMA
     Dosage: ADM ON WKS 1, 2, 4 + 5/INITIAL TX DATE:17-MAY-05/STUDY TX HELD/RESUMED ON 21-JUN-05/REDUCED 50MG/M2
     Route: 042
     Dates: start: 20050601, end: 20050601
  4. RADIATION THERAPY [Suspect]
     Indication: OESOPHAGEAL CARCINOMA
     Dosage: DOSE: 180 GY DAILY FOR 5 DAYS/ADM WK 1-14. RADIATION TX HELD ON 14-JUN-05.
  5. AMBIEN [Concomitant]
  6. ATIVAN [Concomitant]
  7. CLINDAMYCIN [Concomitant]
  8. COMPAZINE [Concomitant]
  9. DECADRON [Concomitant]
  10. HYDROXYZINE [Concomitant]
  11. LEVAQUIN [Concomitant]
  12. LIDOCAINE [Concomitant]
  13. LOMOTIL [Concomitant]
  14. ROXANOL [Concomitant]
  15. ZOFRAN [Concomitant]
  16. DIFLUCAN [Concomitant]
  17. MAGNESIUM OXIDE [Concomitant]
  18. OXYCODONE HCL [Concomitant]
  19. OXYCONTIN [Concomitant]
  20. PROTONIX [Concomitant]
  21. REGLAN [Concomitant]
  22. TOPROL-XL [Concomitant]

REACTIONS (4)
  - DEHYDRATION [None]
  - DIARRHOEA [None]
  - NEUTROPENIA [None]
  - PYREXIA [None]
